FAERS Safety Report 19056489 (Version 1)
Quarter: 2021Q1

REPORT INFORMATION
  Report Type: Spontaneous
  Country: US (occurrence: US)
  Receive Date: 20210325
  Receipt Date: 20210325
  Transmission Date: 20210420
  Serious: Yes (Life-Threatening, Hospitalization, Other)
  Sender: FDA-Public Use
  Company Number: US-MYLANLABS-2021M1017630

PATIENT
  Age: 32 Year
  Sex: Male

DRUGS (16)
  1. CLENBUTEROL [Concomitant]
     Active Substance: CLENBUTEROL
     Indication: SUPPLEMENTATION THERAPY
     Dosage: 200 MICROGRAM
     Route: 065
  2. ALLI [Concomitant]
     Active Substance: ORLISTAT
     Indication: SUPPLEMENTATION THERAPY
     Dosage: 60 MILLIGRAM
     Route: 065
  3. ASTAXANTHIN [Concomitant]
     Active Substance: ASTAXANTHIN
     Indication: SUPPLEMENTATION THERAPY
     Dosage: 6 MILLIGRAM
     Route: 065
  4. INSULIN [Concomitant]
     Active Substance: INSULIN NOS
     Indication: SUPPLEMENTATION THERAPY
     Dosage: UNK
     Route: 065
  5. HEART HEALTH [Concomitant]
     Indication: SUPPLEMENTATION THERAPY
     Dosage: UNK
     Route: 065
  6. POTASSIUM [Concomitant]
     Active Substance: POTASSIUM
     Indication: SUPPLEMENTATION THERAPY
     Dosage: 99 MILLIGRAM
     Route: 065
  7. OIL OF PEPPERMINT [Concomitant]
     Indication: SUPPLEMENTATION THERAPY
     Dosage: 50 MILLIGRAM
     Route: 065
  8. T3 [Concomitant]
     Active Substance: LIOTHYRONINE SODIUM
     Indication: SUPPLEMENTATION THERAPY
     Dosage: 200 MICROGRAM
     Route: 065
  9. ARACHIDONIC ACID [Concomitant]
     Active Substance: ARACHIDONIC ACID
     Indication: SUPPLEMENTATION THERAPY
     Dosage: 350 MILLIGRAM
     Route: 065
  10. MAGNESIUM [Concomitant]
     Active Substance: MAGNESIUM
     Indication: SUPPLEMENTATION THERAPY
     Dosage: 250 MILLIGRAM
     Route: 065
  11. TOREMIFENE [Concomitant]
     Active Substance: TOREMIFENE
     Indication: SUPPLEMENTATION THERAPY
     Dosage: 60 MILLIGRAM
     Route: 065
  12. NIACIN. [Concomitant]
     Active Substance: NIACIN
     Indication: SUPPLEMENTATION THERAPY
     Route: 065
  13. HALOPERIDOL. [Suspect]
     Active Substance: HALOPERIDOL
     Indication: PROPHYLAXIS AGAINST PSYCHOMOTOR AGITATION
     Dosage: 5 MILLIGRAM
     Route: 065
  14. LORAZEPAM. [Suspect]
     Active Substance: LORAZEPAM
     Indication: PROPHYLAXIS AGAINST PSYCHOMOTOR AGITATION
     Dosage: 2 MILLIGRAM
     Route: 065
  15. DIPHENHYDRAMINE. [Suspect]
     Active Substance: DIPHENHYDRAMINE
     Indication: PROPHYLAXIS AGAINST PSYCHOMOTOR AGITATION
     Dosage: 50 MILLIGRAM
     Route: 030
  16. UBIQUINOL QH ABSORB [Concomitant]
     Indication: SUPPLEMENTATION THERAPY
     Dosage: 100 MILLIGRAM
     Route: 065

REACTIONS (2)
  - Drug ineffective [Unknown]
  - Encephalopathy [Recovered/Resolved]
